FAERS Safety Report 20784848 (Version 1)
Quarter: 2022Q2

REPORT INFORMATION
  Report Type: Spontaneous
  Country: AR (occurrence: AR)
  Receive Date: 20220504
  Receipt Date: 20220504
  Transmission Date: 20220720
  Serious: Yes (Other)
  Sender: FDA-Public Use
  Company Number: AR-PFIZER INC-202200595988

PATIENT
  Age: 64 Year
  Sex: Male

DRUGS (1)
  1. VIZIMPRO [Suspect]
     Active Substance: DACOMITINIB
     Indication: Lung cancer metastatic
     Dosage: 30 MG, 1X/DAY
     Dates: start: 20210821

REACTIONS (3)
  - Skin haemorrhage [Unknown]
  - Pain of skin [Not Recovered/Not Resolved]
  - Oral pain [Not Recovered/Not Resolved]
